FAERS Safety Report 7089944-2 (Version None)
Quarter: 2010Q4

REPORT INFORMATION
  Report Type: 
  Country: None (occurrence: None)
  Receive Date: 20101108
  Receipt Date: 20101026
  Transmission Date: 20110411
  Serious: Yes (Death)
  Sender: FDA-Public Use
  Company Number: CA-MYLANLABS-2010S1020089

PATIENT
  Age: 5 Year
  Sex: Female
  Weight: 35 kg

DRUGS (3)
  1. HYDROCODONE BITARTRATE [Interacting]
     Indication: NASOPHARYNGITIS
     Dosage: TOTAL DOSE 30MG OVER 24 HOURS
     Route: 048
  2. VALPROIC ACID [Interacting]
     Indication: CONVULSION
     Route: 065
  3. CLARITHROMYCIN [Suspect]
     Indication: EAR INFECTION
     Route: 065

REACTIONS (2)
  - DRUG INTERACTION [None]
  - NARCOTIC INTOXICATION [None]
